FAERS Safety Report 6819354-1 (Version None)
Quarter: 2010Q3

REPORT INFORMATION
  Report Type: 
  Country: None (occurrence: None)
  Receive Date: 20100707
  Receipt Date: 20100630
  Transmission Date: 20110219
  Serious: Yes (Other)
  Sender: FDA-Public Use
  Company Number: CA-SANOFI-AVENTIS-2010SA024605

PATIENT
  Age: 70 Year
  Sex: Male
  Weight: 79.2 kg

DRUGS (12)
  1. TAXOTERE [Suspect]
     Route: 041
     Dates: start: 20091201, end: 20091201
  2. TAXOTERE [Suspect]
     Route: 041
     Dates: start: 20100401, end: 20100401
  3. ELIGARD [Suspect]
     Route: 065
     Dates: start: 20091027, end: 20091027
  4. ELIGARD [Suspect]
     Route: 065
     Dates: start: 20100119, end: 20100119
  5. CASODEX [Suspect]
     Route: 048
     Dates: start: 20091027, end: 20091125
  6. ANALGESICS [Concomitant]
  7. ANTIHYPERTENSIVES [Concomitant]
  8. ANTITHROMBOTIC AGENTS [Concomitant]
  9. MULTI-VITAMINS [Concomitant]
  10. ENALAPRIL MALEATE [Concomitant]
  11. ATENOLOL [Concomitant]
  12. ANTIBIOTICS [Concomitant]

REACTIONS (1)
  - NEUTROPENIA [None]
